FAERS Safety Report 4523596-8 (Version None)
Quarter: 2004Q4

REPORT INFORMATION
  Report Type: 
  Country: None (occurrence: None)
  Receive Date: 20041117
  Receipt Date: 20040729
  Transmission Date: 20050328
  Serious: Yes (Hospitalization)
  Sender: FDA-Public Use
  Company Number: DE-JNJFOC-20040800252

PATIENT
  Age: 90 Year
  Sex: Female

DRUGS (15)
  1. LEVOFLOXACIN [Suspect]
     Indication: PNEUMONIA
     Dosage: INTRAVENOUS
     Route: 042
     Dates: start: 20031215, end: 20031216
  2. LEVOFLOXACIN [Suspect]
     Indication: PNEUMONIA
     Dosage: ORAL
     Route: 048
     Dates: start: 20031217, end: 20031228
  3. LEVAQUIN [Suspect]
     Indication: PNEUMONIA
     Dosage: 500 MG
     Dates: start: 20031215, end: 20031216
  4. AFRIN (AFRIN /OLD FORM/) [Concomitant]
  5. FLEXERIL [Concomitant]
  6. FLEETS ENEMA (FLEET ENEMA) [Concomitant]
  7. MILK OF MAGNESIA (MAGNESIUM HYDROXIDE) [Concomitant]
  8. DULCOLAX [Concomitant]
  9. AMBIEN [Concomitant]
  10. ACETAMINOPHEN [Concomitant]
  11. ATROVENT [Concomitant]
  12. MORPHINE SULFATE [Concomitant]
  13. FURSOSEMIDE (FUROSEMIDE) [Concomitant]
  14. GUAIFENESIN (GUAIFENESIN) [Concomitant]
  15. PROTONIX [Concomitant]

REACTIONS (1)
  - DYSPNOEA [None]
